FAERS Safety Report 6730479-1 (Version None)
Quarter: 2010Q2

REPORT INFORMATION
  Report Type: 
  Country: None (occurrence: None)
  Receive Date: 20100518
  Receipt Date: 20100513
  Transmission Date: 20101027
  Serious: Yes (Hospitalization)
  Sender: FDA-Public Use
  Company Number: IT-ROCHE-702913

PATIENT
  Sex: Female

DRUGS (1)
  1. ROCEPHIN [Suspect]
     Indication: ERYSIPELAS
     Route: 030
     Dates: start: 20100502, end: 20100502

REACTIONS (2)
  - LARYNGEAL OEDEMA [None]
  - PRURITUS [None]
